FAERS Safety Report 8042747-4 (Version None)
Quarter: 2012Q1

REPORT INFORMATION
  Report Type: 
  Country: None (occurrence: None)
  Receive Date: 20120112
  Receipt Date: 20120103
  Transmission Date: 20120608
  Serious: Yes (Hospitalization)
  Sender: FDA-Public Use
  Company Number: FR-ASTRAZENECA-2011SE78041

PATIENT
  Age: 20493 Day
  Sex: Female

DRUGS (2)
  1. ASPIRIN [Concomitant]
     Route: 048
  2. CRESTOR [Suspect]
     Route: 048
     Dates: start: 20110401, end: 20111110

REACTIONS (2)
  - LIPASE INCREASED [None]
  - PANCREATITIS ACUTE [None]
